FAERS Safety Report 9303535 (Version 1)
Quarter: 2013Q2

REPORT INFORMATION
  Report Type: Spontaneous
  Country: US (occurrence: None)
  Receive Date: 20130521
  Receipt Date: 20130521
  Transmission Date: 20140414
  Serious: No
  Sender: FDA-Public Use
  Company Number: None

PATIENT
  Sex: Female

DRUGS (2)
  1. SINGULAR [Suspect]
     Indication: ASTHMA
     Dosage: 10MG  1X/DAY  PO?~ 1 WEEK
     Route: 048
  2. SINGULAR [Suspect]
     Indication: RHINITIS ALLERGIC
     Dosage: 10MG  1X/DAY  PO?~ 1 WEEK
     Route: 048

REACTIONS (2)
  - Rash [None]
  - Product substitution issue [None]
